FAERS Safety Report 8484551-9 (Version None)
Quarter: 2012Q3

REPORT INFORMATION
  Report Type: 
  Country: None (occurrence: None)
  Receive Date: 20120703
  Receipt Date: 20120627
  Transmission Date: 20120928
  Serious: Yes (Other)
  Sender: FDA-Public Use
  Company Number: US-PFIZER INC-2012154847

PATIENT
  Sex: Female

DRUGS (3)
  1. NORVASC [Suspect]
  2. PROTONIX [Suspect]
  3. LIPITOR [Suspect]

REACTIONS (1)
  - PNEUMONIA [None]
